FAERS Safety Report 7685234-5 (Version None)
Quarter: 2011Q3

REPORT INFORMATION
  Report Type: 
  Country: None (occurrence: None)
  Receive Date: 20110816
  Receipt Date: 20110808
  Transmission Date: 20111222
  Serious: Yes (Other)
  Sender: FDA-Public Use
  Company Number: US-ELI_LILLY_AND_COMPANY-US201002002853

PATIENT
  Sex: Female

DRUGS (9)
  1. BYETTA [Suspect]
     Dosage: UNK, UNK
     Dates: start: 20061001, end: 20080101
  2. ANTACID [Concomitant]
  3. TYLENOL (CAPLET) [Concomitant]
  4. ACTOS [Concomitant]
  5. DURAGESIC-100 [Concomitant]
  6. CYMBALTA [Concomitant]
  7. LISINOPRIL [Concomitant]
  8. NORCO [Concomitant]
  9. NEXIUM [Concomitant]

REACTIONS (3)
  - BLOOD GLUCOSE INCREASED [None]
  - RENAL FAILURE [None]
  - LIGAMENT SPRAIN [None]
